FAERS Safety Report 9249023 (Version 1)
Quarter: 2013Q1

REPORT INFORMATION
  Report Type: Spontaneous
  Country: US (occurrence: None)
  Receive Date: 20130305
  Receipt Date: 20130305
  Transmission Date: 20140127
  Serious: Yes (Death)
  Sender: FDA-Public Use
  Company Number: 163-21880-12091150

PATIENT
  Age: 89 Year
  Sex: Female
  Weight: 54.43 kg

DRUGS (9)
  1. REVLIMID [Suspect]
     Indication: MYELODYSPLASTIC SYNDROME
     Dosage: 1 IN 1D
     Route: 048
     Dates: start: 20111111, end: 20120508
  2. AMLODIPINE(AMLODIPINE)(UNKNOWN) [Concomitant]
  3. GABAPENTIN(GABAPENTIN)(UNKNOWN) [Concomitant]
  4. LORAZEPAM(LORAZEPAM)(UNKNOWN) [Concomitant]
  5. MEGESTROL(MEGESTROL)(UNKNOWN) [Concomitant]
  6. NABUMETONE(NABUMETONE)(UNKNOWN) [Concomitant]
  7. OXYBUTYNIN(OXYBUTYNIN)(UNKNOWN) [Concomitant]
  8. OMEPRAZOLE(OMEPRAZOLE)(UNKNOWN) [Concomitant]
  9. EXJADE(DEFERASIROX)(UNKNOWN) [Concomitant]

REACTIONS (1)
  - Cerebrovascular accident [None]
